FAERS Safety Report 7450194-9 (Version None)
Quarter: 2011Q1

REPORT INFORMATION
  Report Type: 
  Country: None (occurrence: None)
  Receive Date: 20110302
  Receipt Date: 20101207
  Transmission Date: 20110831
  Serious: No
  Sender: FDA-Public Use
  Company Number: 023415

PATIENT
  Sex: Female
  Weight: 59 kg

DRUGS (4)
  1. XANAX [Concomitant]
  2. NORCO [Concomitant]
  3. CIMZIA [Suspect]
     Indication: RHEUMATOID ARTHRITIS
     Dosage: (2 SHOTS SUBCUTANEOUS)
     Route: 058
     Dates: start: 20101101, end: 20101205
  4. TEMAZ [Concomitant]

REACTIONS (5)
  - FATIGUE [None]
  - DECREASED APPETITE [None]
  - DYSPNOEA [None]
  - ERYTHEMA [None]
  - FEELING ABNORMAL [None]
